FAERS Safety Report 4726081-3 (Version None)
Quarter: 2005Q3

REPORT INFORMATION
  Report Type: 
  Country: None (occurrence: None)
  Receive Date: 20050726
  Receipt Date: 20050726
  Transmission Date: 20060218
  Serious: Yes (Disabling)
  Sender: FDA-Public Use
  Company Number: None

PATIENT
  Age: 60 Year
  Sex: Female
  Weight: 63.5036 kg

DRUGS (3)
  1. REMICADE [Suspect]
     Indication: MONONEUROPATHY MULTIPLEX
     Dosage: 3RD RX INTRAVENOUS
     Route: 042
     Dates: start: 20050310, end: 20050310
  2. REMICADE [Suspect]
     Indication: RHEUMATOID ARTHRITIS
     Dosage: 3RD RX INTRAVENOUS
     Route: 042
     Dates: start: 20050310, end: 20050310
  3. ENBREL [Concomitant]

REACTIONS (8)
  - BACK PAIN [None]
  - ERYTHEMA [None]
  - HYPOAESTHESIA [None]
  - INFUSION RELATED REACTION [None]
  - NAUSEA [None]
  - NERVE CONDUCTION STUDIES ABNORMAL [None]
  - OEDEMA PERIPHERAL [None]
  - RASH [None]
